FAERS Safety Report 5926024-0 (Version None)
Quarter: 2008Q3

REPORT INFORMATION
  Report Type: 
  Country: None (occurrence: None)
  Receive Date: 20080924
  Receipt Date: 20080604
  Transmission Date: 20090109
  Serious: No
  Sender: FDA-Public Use
  Company Number: US-WYE-H04379008

PATIENT
  Age: 73 Year
  Sex: Male
  Weight: 104.42 kg

DRUGS (3)
  1. TORISEL [Suspect]
     Indication: RENAL CELL CARCINOMA
     Dosage: 25 MG 1X PER 1 WK, INTRAVEOUS
     Route: 042
     Dates: start: 20071201, end: 20080530
  2. CARDURA [Concomitant]
  3. NORVASC [Concomitant]

REACTIONS (2)
  - MYALGIA [None]
  - WHEEZING [None]
